FAERS Safety Report 26107215 (Version 1)
Quarter: 2025Q4

REPORT INFORMATION
  Report Type: Spontaneous
  Country: US (occurrence: None)
  Receive Date: 20251126
  Receipt Date: 20251126
  Transmission Date: 20260118
  Serious: Yes (unspecified)
  Sender: FDA-CTU
  Company Number: None

PATIENT
  Age: 64 Year
  Sex: Female
  Weight: 71.1 kg

DRUGS (10)
  1. ROSUVASTATIN CALCIUM [Suspect]
     Active Substance: ROSUVASTATIN CALCIUM
     Indication: Hypercholesterolaemia
     Dosage: OTHER QUANTITY : 1 TABLET(S);?FREQUENCY : AT BEDTIME;?
     Route: 048
     Dates: start: 20250403
  2. Triamterine hydrochloride [Concomitant]
  3. ATENOLOL [Concomitant]
     Active Substance: ATENOLOL
  4. MONTELUKAST [Concomitant]
     Active Substance: MONTELUKAST
  5. Candesarten [Concomitant]
  6. ROSUVASTATIN [Concomitant]
     Active Substance: ROSUVASTATIN
  7. ZYRTEC [Concomitant]
     Active Substance: CETIRIZINE HYDROCHLORIDE
  8. VIT D 3 [Concomitant]
  9. JWH-018 [Concomitant]
     Active Substance: JWH-018
  10. MAGNESIUM [Concomitant]
     Active Substance: MAGNESIUM

REACTIONS (8)
  - Laboratory test abnormal [None]
  - Serum ferritin decreased [None]
  - Dyspnoea [None]
  - Temperature intolerance [None]
  - Restless legs syndrome [None]
  - Insomnia [None]
  - Tachycardia [None]
  - Fatigue [None]

NARRATIVE: CASE EVENT DATE: 20251125
